FAERS Safety Report 5771799-7 (Version None)
Quarter: 2008Q2

REPORT INFORMATION
  Report Type: 
  Country: None (occurrence: None)
  Receive Date: 20080613
  Receipt Date: 20080613
  Transmission Date: 20081010
  Serious: Yes (Other)
  Sender: FDA-Public Use
  Company Number: A0732863A

PATIENT
  Age: 63 Year
  Sex: Female
  Weight: 104 kg

DRUGS (14)
  1. ALLI [Suspect]
     Dates: start: 20080609, end: 20080611
  2. METFORMIN HCL [Concomitant]
     Route: 055
  3. POTASSIUM CHLORIDE [Concomitant]
  4. VERAPAMIL [Concomitant]
  5. FUROSEMIDE [Concomitant]
  6. METOCLOPRAMIDE [Concomitant]
  7. HYOSCYAMINE [Concomitant]
  8. LANOXIN [Concomitant]
  9. LEVOTHYROXINE SODIUM [Concomitant]
  10. DIGOXIN [Concomitant]
  11. NITROGLYCERIN [Concomitant]
  12. ALBUTEROL [Concomitant]
     Route: 055
  13. ACIPHEX [Concomitant]
  14. ASPIRIN [Concomitant]

REACTIONS (5)
  - ANXIETY [None]
  - ASTHMA [None]
  - DYSPNOEA [None]
  - LOSS OF CONSCIOUSNESS [None]
  - RESPIRATORY DISORDER [None]
